FAERS Safety Report 8641309 (Version 2)
Quarter: 2012Q4

REPORT INFORMATION
  Report Type: 
  Country: US (occurrence: US)
  Receive Date: 20120628
  Receipt Date: 20121106
  Transmission Date: 20130627
  Serious: Yes (Disabling, Other)
  Sender: FDA-Public Use
  Company Number: US-ROCHE-1080738

PATIENT
  Sex: Male
  Weight: 74.91 kg

DRUGS (1)
  1. ACCUTANE [Suspect]
     Indication: ACNE
     Route: 065
     Dates: start: 198510, end: 198604

REACTIONS (8)
  - Crohn^s disease [Unknown]
  - Anxiety [Unknown]
  - Emotional distress [Unknown]
  - Intestinal obstruction [Unknown]
  - Depression [Unknown]
  - Anal fistula [Unknown]
  - Polyp [Unknown]
  - Arthritis [Unknown]
